FAERS Safety Report 19301042 (Version 1)
Quarter: 2021Q2

REPORT INFORMATION
  Report Type: Report from Study
  Country: IT (occurrence: IT)
  Receive Date: 20210525
  Receipt Date: 20210525
  Transmission Date: 20210717
  Serious: Yes (Hospitalization, Other)
  Sender: FDA-Public Use
  Company Number: IT-ALS-000261

PATIENT
  Age: 49 Year
  Sex: Female

DRUGS (2)
  1. TRAMADOL. [Suspect]
     Active Substance: TRAMADOL
     Indication: PRODUCT USED FOR UNKNOWN INDICATION
     Route: 065
  2. QUETIAPINE. [Suspect]
     Active Substance: QUETIAPINE
     Indication: PRODUCT USED FOR UNKNOWN INDICATION
     Route: 065

REACTIONS (11)
  - Hepatic failure [Unknown]
  - Toxicity to various agents [Unknown]
  - Metabolic acidosis [Unknown]
  - Loss of consciousness [Unknown]
  - Mydriasis [Unknown]
  - Acute kidney injury [Recovering/Resolving]
  - Congestive cardiomyopathy [Unknown]
  - Mitral valve incompetence [Unknown]
  - Shock [Unknown]
  - Drug level above therapeutic [Unknown]
  - Metabolic encephalopathy [Unknown]
